FAERS Safety Report 16466478 (Version 3)
Quarter: 2020Q2

REPORT INFORMATION
  Report Type: Spontaneous
  Country: MX (occurrence: MX)
  Receive Date: 20190622
  Receipt Date: 20200610
  Transmission Date: 20200713
  Serious: Yes (Death, Hospitalization)
  Sender: FDA-Public Use
  Company Number: MX-UCBSA-2019025147

PATIENT
  Age: 0 Year
  Sex: Female
  Weight: 9.45 kg

DRUGS (7)
  1. VIMPAT [Suspect]
     Active Substance: LACOSAMIDE
     Dosage: 1 TABLET IN MORNING AND HALF TABLET IN EVENING
     Route: 048
  2. BRIVIACT [Suspect]
     Active Substance: BRIVARACETAM
     Indication: EPILEPSY
     Dosage: 0.25 TABLET TWICE DAILY
     Route: 048
     Dates: start: 2018
  3. BRIVIACT [Suspect]
     Active Substance: BRIVARACETAM
     Dosage: FINAL REGIMEN
     Route: 048
     Dates: end: 20190615
  4. VIMPAT [Suspect]
     Active Substance: LACOSAMIDE
     Indication: EPILEPSY
     Dosage: 0.5 TABLET TWICE DAILY
     Route: 048
     Dates: start: 2018
  5. VIMPAT [Suspect]
     Active Substance: LACOSAMIDE
     Dosage: 1 TABLET IN MORNING, HALF TABLET IN AFTERNOON AND 1 TABLET AT NIGHT
     Route: 048
  6. BRIVIACT [Suspect]
     Active Substance: BRIVARACETAM
     Dosage: 0.5 DOSAGE FORM, 2X/DAY (BID)
     Route: 048
     Dates: start: 20190604
  7. VIMPAT [Suspect]
     Active Substance: LACOSAMIDE
     Dosage: 100 MILLIGRAM, 3X/DAY (TID)
     Route: 048
     Dates: end: 20190615

REACTIONS (7)
  - Septic shock [Fatal]
  - Pyelonephritis [Fatal]
  - Drug ineffective [Unknown]
  - Sepsis [Fatal]
  - Epilepsy [Fatal]
  - Status epilepticus [Not Recovered/Not Resolved]
  - Off label use [Unknown]

NARRATIVE: CASE EVENT DATE: 2018
